FAERS Safety Report 18292193 (Version 2)
Quarter: 2020Q4

REPORT INFORMATION
  Report Type: Spontaneous
  Country: BR (occurrence: BR)
  Receive Date: 20200921
  Receipt Date: 20201218
  Transmission Date: 20210113
  Serious: Yes (Disabling)
  Sender: FDA-Public Use
  Company Number: BR-009507513-2009BRA006323

PATIENT
  Sex: Female
  Weight: 70 kg

DRUGS (2)
  1. IMPLANON [Suspect]
     Active Substance: ETONOGESTREL
     Indication: UTERINE LEIOMYOMA
     Dosage: 1 DOSAGE FORM
     Route: 059
     Dates: start: 202003
  2. IMPLANON [Suspect]
     Active Substance: ETONOGESTREL
     Indication: MENORRHAGIA

REACTIONS (7)
  - Product prescribing issue [Unknown]
  - Drug ineffective for unapproved indication [Unknown]
  - Anaemia [Unknown]
  - Quality of life decreased [Unknown]
  - Uterine leiomyoma [Unknown]
  - Menorrhagia [Recovering/Resolving]
  - Product use in unapproved indication [Unknown]

NARRATIVE: CASE EVENT DATE: 2020
